FAERS Safety Report 12147558 (Version 2)
Quarter: 2016Q1

REPORT INFORMATION
  Report Type: Spontaneous
  Country: US (occurrence: US)
  Receive Date: 20160304
  Receipt Date: 20160314
  Transmission Date: 20160526
  Serious: Yes (Death, Hospitalization, Other)
  Sender: FDA-Public Use
  Company Number: PHEH2016US005164

PATIENT
  Sex: Male

DRUGS (5)
  1. SAPHRIS [Concomitant]
     Active Substance: ASENAPINE MALEATE
     Indication: PRODUCT USED FOR UNKNOWN INDICATION
     Route: 065
  2. REVLIMID [Concomitant]
     Active Substance: LENALIDOMIDE
     Indication: PRODUCT USED FOR UNKNOWN INDICATION
     Dosage: 10 MG
     Route: 065
  3. PRISTIQ EXTENDED RELEASE [Suspect]
     Active Substance: DESVENLAFAXINE SUCCINATE
     Indication: PRODUCT USED FOR UNKNOWN INDICATION
     Dosage: 50 MG
     Route: 065
  4. ZOMETA [Suspect]
     Active Substance: ZOLEDRONIC ACID
     Indication: PLASMA CELL MYELOMA
     Dosage: 4 MG, UNK
     Route: 065
     Dates: end: 201510
  5. LAMICTAL [Suspect]
     Active Substance: LAMOTRIGINE
     Indication: PRODUCT USED FOR UNKNOWN INDICATION
     Dosage: 50 OR 100 MG
     Route: 065

REACTIONS (12)
  - Pneumonia [Fatal]
  - Fall [Unknown]
  - Osteonecrosis of jaw [Unknown]
  - Multi-vitamin deficiency [Unknown]
  - Tooth loss [Unknown]
  - Eating disorder [Unknown]
  - Confusional state [Unknown]
  - Asthenia [Unknown]
  - Dyspnoea [Unknown]
  - Fluid retention [Unknown]
  - Magnesium deficiency [Unknown]
  - Calcium deficiency [Unknown]
